FAERS Safety Report 4425591-6 (Version None)
Quarter: 2004Q3

REPORT INFORMATION
  Report Type: 
  Country: None (occurrence: None)
  Receive Date: 20040810
  Receipt Date: 20040730
  Transmission Date: 20050211
  Serious: Yes (Death)
  Sender: FDA-Public Use
  Company Number: 163-20785-04030425

PATIENT
  Age: 72 Year
  Sex: Male

DRUGS (2)
  1. THALOMID [Suspect]
     Indication: MULTIPLE MYELOMA
     Dosage: 100 MG DAILY INCREASEDTO 150 MG THEN TO 200 MG AT DIFFERENT TIMES, ORAL
     Route: 048
     Dates: start: 20031017, end: 20040206
  2. VELCADE [Concomitant]

REACTIONS (1)
  - MYOCARDIAL INFARCTION [None]
